FAERS Safety Report 5799589-X (Version None)
Quarter: 2008Q3

REPORT INFORMATION
  Report Type: 
  Country: None (occurrence: None)
  Receive Date: 20080703
  Receipt Date: 20080620
  Transmission Date: 20090109
  Serious: Yes (Other)
  Sender: FDA-Public Use
  Company Number: PHEH2008US05596

PATIENT

DRUGS (1)
  1. CYCLOSPORINE [Suspect]

REACTIONS (1)
  - RHABDOMYOLYSIS [None]
